FAERS Safety Report 16500310 (Version 1)
Quarter: 2019Q3

REPORT INFORMATION
  Report Type: Report from Study
  Country: US (occurrence: US)
  Receive Date: 20190701
  Receipt Date: 20190701
  Transmission Date: 20191004
  Serious: Yes (Hospitalization)
  Sender: FDA-Public Use
  Company Number: US-BAYER-2019-122378

PATIENT
  Age: 67 Year
  Sex: Female

DRUGS (19)
  1. DOCUSATE [Concomitant]
     Active Substance: DOCUSATE
  2. ACYCLOVIR [ACICLOVIR] [Concomitant]
     Active Substance: ACYCLOVIR
  3. BACTRIM DS [Concomitant]
     Active Substance: SULFAMETHOXAZOLE\TRIMETHOPRIM
  4. PANTOPRAZOLE [Concomitant]
     Active Substance: PANTOPRAZOLE
  5. FLUCONAZOLE. [Concomitant]
     Active Substance: FLUCONAZOLE
  6. MULTIVITAMINS [VITAMINS NOS] [Concomitant]
     Active Substance: VITAMINS
  7. FOLIC ACID. [Concomitant]
     Active Substance: FOLIC ACID
  8. LEVOFLOXACIN. [Concomitant]
     Active Substance: LEVOFLOXACIN
  9. MAGNESIUM [Concomitant]
     Active Substance: MAGNESIUM
  10. PROCHLORPERAZINE. [Concomitant]
     Active Substance: PROCHLORPERAZINE
  11. CALCIUM CARBONATE. [Concomitant]
     Active Substance: CALCIUM CARBONATE
  12. ATORVASTATIN [Concomitant]
     Active Substance: ATORVASTATIN
  13. NEXAVAR [Suspect]
     Active Substance: SORAFENIB
     Indication: ACUTE MYELOID LEUKAEMIA
     Dosage: 200 MG, BID
     Dates: start: 20190430, end: 2019
  14. METFORMIN [Concomitant]
     Active Substance: METFORMIN HYDROCHLORIDE
  15. VITAMIN D3 [Concomitant]
     Active Substance: CHOLECALCIFEROL
  16. LISINOPRIL. [Concomitant]
     Active Substance: LISINOPRIL
  17. TRAZODONE [Concomitant]
     Active Substance: TRAZODONE HYDROCHLORIDE
  18. URSODIOL. [Concomitant]
     Active Substance: URSODIOL
  19. AMLODIPINE [Concomitant]
     Active Substance: AMLODIPINE BESYLATE

REACTIONS (2)
  - Hospitalisation [None]
  - Off label use [None]
